FAERS Safety Report 19750717 (Version 1)
Quarter: 2021Q3

REPORT INFORMATION
  Report Type: Spontaneous
  Country: US (occurrence: US)
  Receive Date: 20210826
  Receipt Date: 20210826
  Transmission Date: 20211014
  Serious: No
  Sender: FDA-Public Use
  Company Number: US-BIOCODEX SA-2021000956

PATIENT

DRUGS (4)
  1. DIACOMIT [Suspect]
     Active Substance: STIRIPENTOL
     Indication: LENNOX-GASTAUT SYNDROME
     Dosage: 500MG TWICE DAILY
     Route: 065
     Dates: start: 20200804
  2. MIDAZOLAM HCL [Concomitant]
     Active Substance: MIDAZOLAM HYDROCHLORIDE
     Indication: PRODUCT USED FOR UNKNOWN INDICATION
     Route: 065
  3. CLOBAZAM. [Concomitant]
     Active Substance: CLOBAZAM
     Indication: PRODUCT USED FOR UNKNOWN INDICATION
     Route: 065
  4. LEVETIRACETAM. [Concomitant]
     Active Substance: LEVETIRACETAM
     Indication: PRODUCT USED FOR UNKNOWN INDICATION
     Route: 065

REACTIONS (3)
  - No adverse event [Unknown]
  - Product use in unapproved indication [Unknown]
  - Product dose omission issue [Unknown]
